FAERS Safety Report 5823718-2 (Version None)
Quarter: 2008Q3

REPORT INFORMATION
  Report Type: 
  Country: None (occurrence: None)
  Receive Date: 20080725
  Receipt Date: 20080715
  Transmission Date: 20090109
  Serious: Yes (Other)
  Sender: FDA-Public Use
  Company Number: US-PFIZER INC-2008052147

PATIENT
  Sex: Female

DRUGS (8)
  1. XANAX [Suspect]
     Indication: ANXIETY
     Route: 048
  2. ROZEREM [Suspect]
     Indication: INSOMNIA
     Dosage: DAILY DOSE:16MG-TEXT:16 MILLIGRAM QHS
     Route: 048
     Dates: start: 20080101
  3. ALL OTHER THERAPEUTIC PRODUCTS [Suspect]
     Route: 048
  4. MERIDIA [Concomitant]
     Dates: start: 20070817, end: 20080206
  5. SYNTHROID [Concomitant]
     Indication: HYPOTHYROIDISM
     Dosage: DAILY DOSE:.05MG-TEXT:EVER MORNING
     Route: 048
  6. LAMICTAL [Concomitant]
     Indication: BIPOLAR DISORDER
     Route: 048
     Dates: start: 20070817
  7. TOPAMAX [Concomitant]
     Indication: MOOD SWINGS
     Route: 048
  8. COGENTIN [Concomitant]

REACTIONS (3)
  - INCONTINENCE [None]
  - INSOMNIA [None]
  - OVERDOSE [None]
